FAERS Safety Report 6253894-1 (Version None)
Quarter: 2009Q3

REPORT INFORMATION
  Report Type: 
  Country: None (occurrence: None)
  Receive Date: 20090702
  Receipt Date: 20090622
  Transmission Date: 20100115
  Serious: Yes (Hospitalization)
  Sender: FDA-Public Use
  Company Number: CA-JNJFOC-20090607981

PATIENT
  Sex: Male
  Weight: 117.3 kg

DRUGS (2)
  1. REMICADE [Suspect]
     Indication: CROHN'S DISEASE
     Dosage: TOTAL OF 10 DOSES
     Route: 042
  2. SOLU-CORTEF [Concomitant]
     Indication: PREMEDICATION

REACTIONS (3)
  - DIARRHOEA [None]
  - PYREXIA [None]
  - VOMITING [None]
